FAERS Safety Report 8566880-3 (Version None)
Quarter: 2012Q3

REPORT INFORMATION
  Report Type: 
  Country: None (occurrence: None)
  Receive Date: 20120803
  Receipt Date: 20110901
  Transmission Date: 20120928
  Serious: No
  Sender: FDA-Public Use
  Company Number: US-ABBOTT-11P-163-0847873-00

PATIENT
  Sex: Female
  Weight: 95.34 kg

DRUGS (8)
  1. CYMBALTA [Concomitant]
     Indication: RHEUMATOID ARTHRITIS
  2. PREDNISONE [Concomitant]
     Indication: RHEUMATOID ARTHRITIS
  3. ASPIRIN [Concomitant]
     Indication: PRODUCT USED FOR UNKNOWN INDICATION
  4. TOPROL-XL [Concomitant]
     Indication: PALPITATIONS
  5. CYMBALTA [Concomitant]
     Indication: DEPRESSION
  6. NIASPAN [Suspect]
     Indication: HIGH DENSITY LIPOPROTEIN DECREASED
     Dates: start: 20110728, end: 20110827
  7. METHOTREXATE [Concomitant]
     Indication: PRODUCT USED FOR UNKNOWN INDICATION
  8. CYMBALTA [Concomitant]
     Indication: PAIN

REACTIONS (10)
  - BURNING SENSATION [None]
  - DIARRHOEA [None]
  - FLUSHING [None]
  - FEAR [None]
  - ASTHENIA [None]
  - AGGRESSION [None]
  - RASH [None]
  - IRRITABILITY [None]
  - IMPATIENCE [None]
  - PRURITUS [None]
